FAERS Safety Report 20359122 (Version 2)
Quarter: 2024Q1

REPORT INFORMATION
  Report Type: Spontaneous
  Country: US (occurrence: US)
  Receive Date: 20220120
  Receipt Date: 20240117
  Transmission Date: 20240409
  Serious: No
  Sender: FDA-Public Use
  Company Number: US-TERSERA THERAPEUTICS LLC-2021TRS003354

PATIENT

DRUGS (5)
  1. PRIALT [Suspect]
     Active Substance: ZICONOTIDE ACETATE
     Indication: Product used for unknown indication
     Dosage: 1.1437 MCG/DAY (CONCENTRATION: 3.6 MCG/ML)
     Route: 037
  2. CLONIDINE [Suspect]
     Active Substance: CLONIDINE
     Indication: Product used for unknown indication
     Dosage: 4.416 MG (CONCENTRATION: 13.9MG/ML)
     Route: 037
  3. CLONIDINE [Suspect]
     Active Substance: CLONIDINE
     Dosage: 143.1 MCG, QD (CONCENTRATION:  450MCG/ML)
     Route: 037
  4. CLONIDINE [Suspect]
     Active Substance: CLONIDINE
     Dosage: 142.97 MCG, QD (CONCENTRATION: 450 MCG/ML)
     Route: 037
  5. DILAUDID [Suspect]
     Active Substance: HYDROMORPHONE HYDROCHLORIDE
     Indication: Product used for unknown indication
     Dosage: 4.416 MG, QD (CONCENTRATION: 13.9 MG/ML))
     Route: 037

REACTIONS (6)
  - Body mass index increased [Unknown]
  - Implant site pain [Unknown]
  - Back pain [Unknown]
  - Cold sweat [Unknown]
  - Hyperhidrosis [Unknown]
  - Off label use [Unknown]
